FAERS Safety Report 6760189-6 (Version None)
Quarter: 2010Q2

REPORT INFORMATION
  Report Type: 
  Country: None (occurrence: None)
  Receive Date: 20100604
  Receipt Date: 20100520
  Transmission Date: 20101027
  Serious: Yes (Other)
  Sender: FDA-Public Use
  Company Number: 2010-0054

PATIENT
  Age: 8 Year
  Sex: Male

DRUGS (1)
  1. DYSPORT [Suspect]
     Indication: DROOLING
     Dosage: 300 UNITS (300 UNITS, SINGLE CYCLE)
     Dates: start: 20091221, end: 20091221

REACTIONS (4)
  - ASPIRATION [None]
  - DYSPHAGIA [None]
  - POSTURE ABNORMAL [None]
  - SPEECH DISORDER [None]
